FAERS Safety Report 5930700-3 (Version None)
Quarter: 2008Q4

REPORT INFORMATION
  Report Type: 
  Country: None (occurrence: None)
  Receive Date: 20081024
  Receipt Date: 20081024
  Transmission Date: 20090506
  Serious: Yes (Hospitalization)
  Sender: FDA-Public Use
  Company Number: None

PATIENT
  Sex: Male
  Weight: 101 kg

DRUGS (17)
  1. ABRAXANE [Suspect]
     Indication: SMALL CELL LUNG CANCER STAGE UNSPECIFIED
     Dosage: 600 MG EVERY 3 WEEKS IV
     Route: 042
     Dates: start: 20080701
  2. ABRAXANE [Suspect]
     Indication: SMALL CELL LUNG CANCER STAGE UNSPECIFIED
     Dosage: 600 MG EVERY 3 WEEKS IV
     Route: 042
     Dates: start: 20080721
  3. ABRAXANE [Suspect]
     Indication: SMALL CELL LUNG CANCER STAGE UNSPECIFIED
     Dosage: 600 MG EVERY 3 WEEKS IV
     Route: 042
     Dates: start: 20080811
  4. ABRAXANE [Suspect]
     Indication: SMALL CELL LUNG CANCER STAGE UNSPECIFIED
     Dosage: 600 MG EVERY 3 WEEKS IV
     Route: 042
     Dates: start: 20080908
  5. ABRAXANE [Suspect]
     Indication: SMALL CELL LUNG CANCER STAGE UNSPECIFIED
     Dosage: 600 MG EVERY 3 WEEKS IV
     Route: 042
     Dates: start: 20081001
  6. CARBOPLATIN [Suspect]
     Indication: SMALL CELL LUNG CANCER STAGE UNSPECIFIED
     Dosage: AUC6 -RANGE 525-753 EVERY 3 WEEKS IV
     Route: 042
     Dates: start: 20080701
  7. CARBOPLATIN [Suspect]
     Indication: SMALL CELL LUNG CANCER STAGE UNSPECIFIED
     Dosage: AUC6 -RANGE 525-753 EVERY 3 WEEKS IV
     Route: 042
     Dates: start: 20080721
  8. CARBOPLATIN [Suspect]
     Indication: SMALL CELL LUNG CANCER STAGE UNSPECIFIED
     Dosage: AUC6 -RANGE 525-753 EVERY 3 WEEKS IV
     Route: 042
     Dates: start: 20080811
  9. CARBOPLATIN [Suspect]
     Indication: SMALL CELL LUNG CANCER STAGE UNSPECIFIED
     Dosage: AUC6 -RANGE 525-753 EVERY 3 WEEKS IV
     Route: 042
     Dates: start: 20080908
  10. CARBOPLATIN [Suspect]
     Indication: SMALL CELL LUNG CANCER STAGE UNSPECIFIED
     Dosage: AUC6 -RANGE 525-753 EVERY 3 WEEKS IV
     Route: 042
     Dates: start: 20081001
  11. COREG [Concomitant]
  12. VASOTEC [Concomitant]
  13. NEXIUM [Concomitant]
  14. DECADRON [Concomitant]
  15. KEPPRA [Concomitant]
  16. NEURONTIN [Concomitant]
  17. COMPAZINE [Concomitant]

REACTIONS (8)
  - ASTHENIA [None]
  - BALANCE DISORDER [None]
  - CONVULSION [None]
  - ENCEPHALOPATHY [None]
  - GAIT DISTURBANCE [None]
  - LETHARGY [None]
  - METASTASES TO CENTRAL NERVOUS SYSTEM [None]
  - SOMNOLENCE [None]
